FAERS Safety Report 10340749 (Version 2)
Quarter: 2014Q3

REPORT INFORMATION
  Report Type: Report from Study
  Country: US (occurrence: US)
  Receive Date: 20140724
  Receipt Date: 20140828
  Transmission Date: 20150326
  Serious: Yes (Hospitalization, Other)
  Sender: FDA-Public Use
  Company Number: US-JNJFOC-20140711358

PATIENT
  Age: 58 Year
  Sex: Female
  Weight: 77.11 kg

DRUGS (16)
  1. INVOKANA [Suspect]
     Active Substance: CANAGLIFLOZIN
     Indication: PRODUCT USED FOR UNKNOWN INDICATION
     Route: 048
     Dates: start: 20140528, end: 20140618
  2. LOSARTAN [Concomitant]
     Active Substance: LOSARTAN
  3. NEXIUM [Concomitant]
     Active Substance: ESOMEPRAZOLE MAGNESIUM
  4. VITAMIN B12 [Concomitant]
     Active Substance: CYANOCOBALAMIN
  5. VITAMIN C [Concomitant]
     Active Substance: ASCORBIC ACID
  6. GLUCOPHAGE [Concomitant]
     Active Substance: METFORMIN HYDROCHLORIDE
  7. TRIAZOLAM. [Concomitant]
     Active Substance: TRIAZOLAM
  8. INVOKANA [Suspect]
     Active Substance: CANAGLIFLOZIN
     Indication: PRODUCT USED FOR UNKNOWN INDICATION
     Route: 048
     Dates: start: 20140623
  9. WELLBUTRIN XL [Concomitant]
     Active Substance: BUPROPION HYDROCHLORIDE
  10. SYNTHROID [Concomitant]
     Active Substance: LEVOTHYROXINE SODIUM
  11. CHLORTHALIDONE. [Concomitant]
     Active Substance: CHLORTHALIDONE
  12. METOPROLOL TARTRATE. [Concomitant]
     Active Substance: METOPROLOL TARTRATE
  13. BABY ASPIRIN [Concomitant]
     Active Substance: ASPIRIN
  14. LANTUS [Concomitant]
     Active Substance: INSULIN GLARGINE
  15. FLEXERIL [Concomitant]
     Active Substance: CYCLOBENZAPRINE HYDROCHLORIDE
  16. NOVOLOG [Concomitant]
     Active Substance: INSULIN ASPART
     Dosage: 6 UNITS AT LUNCH AND 14 UNITS AT DINNER

REACTIONS (12)
  - Pain [Recovering/Resolving]
  - Drug ineffective [Unknown]
  - Dehydration [Recovered/Resolved]
  - Drug dose omission [Unknown]
  - Diarrhoea [Recovered/Resolved]
  - Myalgia [Recovered/Resolved]
  - Nausea [Recovered/Resolved]
  - Urinary tract infection [Recovering/Resolving]
  - Fungal infection [Recovered/Resolved]
  - Pyrexia [Unknown]
  - Sepsis [Recovered/Resolved]
  - Abdominal discomfort [Recovering/Resolving]

NARRATIVE: CASE EVENT DATE: 20140528
